FAERS Safety Report 6217898-7 (Version None)
Quarter: 2009Q2

REPORT INFORMATION
  Report Type: 
  Country: None (occurrence: None)
  Receive Date: 20090608
  Receipt Date: 20090525
  Transmission Date: 20091009
  Serious: Yes (Hospitalization)
  Sender: FDA-Public Use
  Company Number: IT-ELI_LILLY_AND_COMPANY-IT200905004773

PATIENT
  Age: 51 Year
  Sex: Male

DRUGS (1)
  1. XIGRIS [Suspect]
     Dosage: 24 MICRO GRAM/KG/HRS
     Route: 065
     Dates: start: 20090524

REACTIONS (1)
  - PLATELET COUNT DECREASED [None]
